FAERS Safety Report 7035892-3 (Version None)
Quarter: 2010Q4

REPORT INFORMATION
  Report Type: 
  Country: None (occurrence: None)
  Receive Date: 20101008
  Receipt Date: 20100930
  Transmission Date: 20110411
  Serious: Yes (Hospitalization, Other)
  Sender: FDA-Public Use
  Company Number: US-AMGEN-QUU434480

PATIENT
  Sex: Male
  Weight: 78.9 kg

DRUGS (16)
  1. NPLATE [Suspect]
     Indication: IDIOPATHIC THROMBOCYTOPENIC PURPURA
     Dates: start: 20081020
  2. CORTICOSTEROIDS [Concomitant]
  3. PREDNISONE [Concomitant]
  4. BETAPACE [Concomitant]
     Route: 048
  5. ASPIRIN [Concomitant]
     Route: 048
  6. COUMADIN [Concomitant]
     Route: 048
  7. COUMADIN [Concomitant]
     Route: 048
  8. FOSINOPRIL [Concomitant]
     Route: 048
  9. DILTIAZEM [Concomitant]
     Route: 048
  10. CRESTOR [Concomitant]
     Route: 048
  11. PREDNISONE [Concomitant]
  12. GLUCOSAMINE [Concomitant]
     Route: 048
  13. VITAMIN B [Concomitant]
     Route: 048
  14. VITAMIN D [Concomitant]
     Route: 048
  15. CALCIUM [Concomitant]
     Route: 048
  16. FISH OIL [Concomitant]
     Route: 048

REACTIONS (7)
  - ACUTE MYOCARDIAL INFARCTION [None]
  - ATRIAL FIBRILLATION [None]
  - MONOCYTOSIS [None]
  - MYOCARDIAL ISCHAEMIA [None]
  - PETECHIAE [None]
  - PLATELET COUNT ABNORMAL [None]
  - PURPURA [None]
